FAERS Safety Report 7828856-0 (Version None)
Quarter: 2011Q4

REPORT INFORMATION
  Report Type: 
  Country: None (occurrence: None)
  Receive Date: 20111020
  Receipt Date: 20111013
  Transmission Date: 20120403
  Serious: Yes (Hospitalization, Other)
  Sender: FDA-Public Use
  Company Number: CHPA2011US14177

PATIENT
  Age: 85 Year
  Sex: Female

DRUGS (2)
  1. TRANSDERM SCOP [Suspect]
     Indication: NAUSEA
  2. TRANSDERM SCOP [Suspect]
     Indication: DIZZINESS
     Dosage: 1 DF, Q72H
     Route: 061

REACTIONS (7)
  - APPLICATION SITE EROSION [None]
  - REBOUND EFFECT [None]
  - DRUG DEPENDENCE [None]
  - CEREBROVASCULAR ACCIDENT [None]
  - DEHYDRATION [None]
  - DENTURE WEARER [None]
  - TOOTH EROSION [None]
